FAERS Safety Report 14735398 (Version 2)
Quarter: 2018Q2

REPORT INFORMATION
  Report Type: Spontaneous
  Country: US (occurrence: US)
  Receive Date: 20180409
  Receipt Date: 20180611
  Transmission Date: 20180711
  Serious: No
  Sender: FDA-Public Use
  Company Number: US-BRISTOL-MYERS SQUIBB COMPANY-BMS-2018-031845

PATIENT
  Sex: Female

DRUGS (3)
  1. BIOTIN [Suspect]
     Active Substance: BIOTIN
     Indication: PRODUCT USED FOR UNKNOWN INDICATION
     Route: 065
  2. ORENCIA [Suspect]
     Active Substance: ABATACEPT
     Indication: RHEUMATOID ARTHRITIS
     Dosage: 500 MG, (3 LOADING DOSES THAT WERE TWO WEEKS APART AND THEN ONCE A MONTH)
     Route: 042
     Dates: start: 20180130
  3. OXYBUTYNIN. [Concomitant]
     Active Substance: OXYBUTYNIN CHLORIDE
     Indication: PROPHYLAXIS
     Route: 065

REACTIONS (3)
  - Alopecia [Unknown]
  - Drug ineffective [Unknown]
  - Paranoia [Unknown]
